FAERS Safety Report 5271040-8 (Version None)
Quarter: 2007Q1

REPORT INFORMATION
  Report Type: 
  Country: None (occurrence: None)
  Receive Date: 20070321
  Receipt Date: 20070321
  Transmission Date: 20070707
  Serious: Yes (Death)
  Sender: FDA-Public Use
  Company Number: None

PATIENT
  Sex: Female
  Weight: 63.9572 kg

DRUGS (2)
  1. PACLITAXEL [Suspect]
     Indication: OVARIAN CANCER
     Dosage: Q 21 DAYS/042
     Dates: start: 20070217
  2. CARBOPLATIN [Suspect]
     Indication: OVARIAN CANCER
     Dosage: Q 21 DAYS/042
     Dates: start: 20070217

REACTIONS (1)
  - DEATH [None]
